FAERS Safety Report 6523508-1 (Version None)
Quarter: 2009Q4

REPORT INFORMATION
  Report Type: 
  Country: None (occurrence: None)
  Receive Date: 20091231
  Receipt Date: 20091220
  Transmission Date: 20100525
  Serious: Yes (Hospitalization)
  Sender: FDA-Public Use
  Company Number: PHHY2009SA56899

PATIENT
  Age: 32 Year
  Sex: Female

DRUGS (1)
  1. EXJADE [Suspect]
     Indication: THALASSAEMIA
     Dosage: 30 MG PER DAY
     Route: 048

REACTIONS (2)
  - ASCITES [None]
  - HEPATIC FUNCTION ABNORMAL [None]
